FAERS Safety Report 18482983 (Version 2)
Quarter: 2020Q4

REPORT INFORMATION
  Report Type: Spontaneous
  Country: US (occurrence: US)
  Receive Date: 20201110
  Receipt Date: 20201113
  Transmission Date: 20210114
  Serious: No
  Sender: FDA-Public Use
  Company Number: US-AMGEN INC.-USASP2020179387

PATIENT
  Age: 74 Year
  Sex: Male

DRUGS (4)
  1. NURTEC ODT [Concomitant]
     Active Substance: RIMEGEPANT SULFATE
     Indication: MIGRAINE
     Dosage: 75 MILLIGRAM
     Dates: start: 20201014
  2. DEXAMETHASONE. [Concomitant]
     Active Substance: DEXAMETHASONE
     Indication: MIGRAINE
     Dosage: UNK
     Dates: end: 20201013
  3. DHE [DEHYDROEMETINE] [Suspect]
     Active Substance: DEHYDROEMETINE
     Indication: MIGRAINE
     Dosage: UNK
     Route: 042
  4. AIMOVIG [Suspect]
     Active Substance: ERENUMAB-AOOE
     Indication: MIGRAINE PROPHYLAXIS
     Dosage: UNK UNK, QMO
     Route: 065
     Dates: start: 202010

REACTIONS (2)
  - Drug ineffective [Unknown]
  - Migraine [Not Recovered/Not Resolved]

NARRATIVE: CASE EVENT DATE: 202010
